FAERS Safety Report 19668366 (Version 1)
Quarter: 2021Q3

REPORT INFORMATION
  Report Type: Spontaneous
  Country: PL (occurrence: PL)
  Receive Date: 20210806
  Receipt Date: 20210806
  Transmission Date: 20211014
  Serious: Yes (Other)
  Sender: FDA-Public Use
  Company Number: PL-PFIZER INC-202100947118

PATIENT
  Age: 54 Year
  Sex: Male
  Weight: 63 kg

DRUGS (1)
  1. SUTENT [Suspect]
     Active Substance: SUNITINIB MALATE
     Indication: RENAL CELL CARCINOMA
     Dosage: 50 MG
     Route: 048

REACTIONS (16)
  - Nausea [Unknown]
  - Blood thyroid stimulating hormone decreased [Unknown]
  - Arthralgia [Unknown]
  - Decreased appetite [Unknown]
  - Chronic kidney disease [Unknown]
  - Oral discomfort [Unknown]
  - Blood thyroid stimulating hormone increased [Unknown]
  - Palmar-plantar erythrodysaesthesia syndrome [Unknown]
  - Blood pressure increased [Unknown]
  - Epistaxis [Unknown]
  - Dry mouth [Unknown]
  - Vomiting [Unknown]
  - Alanine aminotransferase increased [Unknown]
  - Thrombocytopenia [Unknown]
  - Abdominal pain upper [Unknown]
  - Anaemia [Unknown]
